FAERS Safety Report 4640504-X (Version None)
Quarter: 2005Q2

REPORT INFORMATION
  Report Type: 
  Country: None (occurrence: None)
  Receive Date: 20050328
  Receipt Date: 20050131
  Transmission Date: 20051028
  Serious: No
  Sender: FDA-Public Use
  Company Number: USA050289555

PATIENT
  Sex: Female

DRUGS (2)
  1. STRATTERA [Suspect]
     Dosage: 40 MG IN THE MORNING
     Dates: start: 20050125
  2. VITAMINS [Concomitant]

REACTIONS (4)
  - INSOMNIA [None]
  - PERIPHERAL COLDNESS [None]
  - POLLAKIURIA [None]
  - PRURITUS [None]
